FAERS Safety Report 5015445-9 (Version None)
Quarter: 2006Q2

REPORT INFORMATION
  Report Type: 
  Country: None (occurrence: None)
  Receive Date: 20060601
  Receipt Date: 20060523
  Transmission Date: 20061013
  Serious: Yes (Other)
  Sender: FDA-Public Use
  Company Number: GB-JNJFOC-20060505958

PATIENT
  Age: 3 Decade
  Sex: Female

DRUGS (2)
  1. TOPAMAX [Suspect]
     Route: 065
  2. TOPAMAX [Suspect]
     Indication: EPILEPSY
     Route: 065

REACTIONS (3)
  - PERIPHERAL COLDNESS [None]
  - PIGMENTATION DISORDER [None]
  - WEIGHT DECREASED [None]
